FAERS Safety Report 6636698-7 (Version None)
Quarter: 2010Q1

REPORT INFORMATION
  Report Type: 
  Country: None (occurrence: None)
  Receive Date: 20100316
  Receipt Date: 20100308
  Transmission Date: 20100710
  Serious: Yes (Other)
  Sender: FDA-Public Use
  Company Number: B0632420A

PATIENT
  Age: 54 Year
  Sex: Male
  Weight: 85 kg

DRUGS (3)
  1. AUGMENTIN XR [Suspect]
     Dosage: 2TAB TWICE PER DAY
     Route: 048
     Dates: start: 20100101
  2. RABIPUR [Suspect]
     Dosage: 1INJ SINGLE DOSE
     Route: 030
     Dates: start: 20100103, end: 20100103
  3. IMMUNE GLOBULIN NOS [Suspect]
     Route: 065
     Dates: start: 20100101

REACTIONS (3)
  - DIZZINESS [None]
  - PARAESTHESIA [None]
  - VISION BLURRED [None]
